FAERS Safety Report 5099117-0 (Version None)
Quarter: 2006Q3

REPORT INFORMATION
  Report Type: 
  Country: None (occurrence: None)
  Receive Date: 20060731
  Receipt Date: 20051003
  Transmission Date: 20061208
  Serious: Yes (Other)
  Sender: FDA-Public Use
  Company Number: 218351

PATIENT
  Age: 53 Year
  Sex: Male

DRUGS (13)
  1. RITUXAN [Suspect]
     Indication: B-CELL LYMPHOMA
     Dosage: 375 MG/M2
  2. CYCLOPHOSPHAMIDE [Concomitant]
  3. MITOXANTRONE [Concomitant]
  4. VINCRISTINE [Concomitant]
  5. PREDNISONE TAB [Concomitant]
  6. FOLIC ACID [Concomitant]
  7. METOPROLOL TARTRATE [Concomitant]
  8. ISOSORIBIDE MONONITRATE (ISOSORBIDE MONONITRATE) [Concomitant]
  9. AMLODIPINE BESYLATE [Concomitant]
  10. ASPIRIN [Concomitant]
  11. NAPROXEN [Concomitant]
  12. IBUPROFEN [Concomitant]
  13. TEMAZEPAM [Concomitant]

REACTIONS (1)
  - PNEUMONITIS [None]
